FAERS Safety Report 4681218-X (Version None)
Quarter: 2005Q2

REPORT INFORMATION
  Report Type: 
  Country: None (occurrence: None)
  Receive Date: 20050602
  Receipt Date: 20050602
  Transmission Date: 20051028
  Serious: Yes (Hospitalization)
  Sender: FDA-Public Use
  Company Number: None

PATIENT

DRUGS (2)
  1. EFFEXOR [Suspect]
     Indication: ANXIETY
     Dosage: 1 X DAY
     Dates: start: 20030610, end: 20041212
  2. EFFEXOR [Suspect]
     Indication: DEPRESSION
     Dosage: 1 X DAY
     Dates: start: 20030610, end: 20041212

REACTIONS (5)
  - DRUG DEPENDENCE [None]
  - DRUG WITHDRAWAL SYNDROME [None]
  - MIGRAINE [None]
  - NERVOUS SYSTEM DISORDER [None]
  - TINNITUS [None]
